FAERS Safety Report 6220223-9 (Version None)
Quarter: 2009Q2

REPORT INFORMATION
  Report Type: 
  Country: None (occurrence: None)
  Receive Date: 20090605
  Receipt Date: 20090521
  Transmission Date: 20091009
  Serious: Yes (Hospitalization)
  Sender: FDA-Public Use
  Company Number: 285415

PATIENT
  Age: 49 Year
  Sex: Female
  Weight: 75.6 kg

DRUGS (4)
  1. EPIRUBICIN [Suspect]
     Indication: BREAST CANCER
     Dosage: 180 MG, UNKNOWN, INTRAVENOUS
     Route: 042
     Dates: start: 20080801, end: 20090101
  2. FLUOROURACIL [Suspect]
     Indication: BREAST CANCER
     Dosage: 900 MG, UNKNOWN, INTRAVENOUS
     Route: 042
     Dates: start: 20080801, end: 20090101
  3. CYCLOPHOSPHAMIDE [Suspect]
     Indication: BREAST CANCER
     Dosage: 900 MG, UNKNOWN, INTRAVENOUS
     Route: 042
     Dates: start: 20080801, end: 20090101
  4. VENLAFAXINE HYDROCHLORIDE [Concomitant]

REACTIONS (3)
  - ABDOMINAL PAIN UPPER [None]
  - CARDIAC FAILURE [None]
  - CHEST DISCOMFORT [None]
